FAERS Safety Report 10374461 (Version 1)
Quarter: 2014Q3

REPORT INFORMATION
  Report Type: Spontaneous
  Country: CA (occurrence: CA)
  Receive Date: 20140811
  Receipt Date: 20140811
  Transmission Date: 20150326
  Serious: Yes (Death, Life-Threatening, Hospitalization)
  Sender: FDA-Public Use
  Company Number: CA-ROCHE-1446966

PATIENT
  Age: 48 Year
  Sex: Female

DRUGS (5)
  1. TYKERB [Suspect]
     Active Substance: LAPATINIB DITOSYLATE
     Indication: PRODUCT USED FOR UNKNOWN INDICATION
     Dosage: THERAPY DURATION:  332.0 DAY(S)
     Route: 048
  2. DEXAMETHASONE. [Concomitant]
     Active Substance: DEXAMETHASONE
     Route: 065
  3. XELODA [Suspect]
     Active Substance: CAPECITABINE
     Indication: PRODUCT USED FOR UNKNOWN INDICATION
     Dosage: THERAPY DURATION:  279.0 DAY(S)
     Route: 048
  4. STEMETIL [Concomitant]
     Active Substance: PROCHLORPERAZINE MALEATE
     Route: 065
  5. TYLENOL [Concomitant]
     Active Substance: ACETAMINOPHEN
     Route: 065

REACTIONS (17)
  - Gastrointestinal haemorrhage [Fatal]
  - Decreased appetite [Fatal]
  - Erythema [Fatal]
  - Fatigue [Fatal]
  - Pain [Fatal]
  - Metastases to liver [Fatal]
  - Hepatic cancer [Fatal]
  - Skin disorder [Fatal]
  - Nausea [Fatal]
  - Skin fissures [Fatal]
  - Gastritis [Fatal]
  - Diarrhoea [Fatal]
  - Dry skin [Fatal]
  - Skin exfoliation [Fatal]
  - Skin discolouration [Fatal]
  - Vomiting [Fatal]
  - Weight decreased [Fatal]
